FAERS Safety Report 4331979-4 (Version None)
Quarter: 2004Q2

REPORT INFORMATION
  Report Type: 
  Country: None (occurrence: None)
  Receive Date: 20040405
  Receipt Date: 20030827
  Transmission Date: 20050107
  Serious: No
  Sender: FDA-Public Use
  Company Number: US-GLAXOSMITHKLINE-A0423865A

PATIENT
  Age: 6 Year
  Sex: Male

DRUGS (1)
  1. SEREVENT [Suspect]
     Indication: ASTHMA
     Dosage: 2PUFF TWICE PER DAY
     Route: 055
     Dates: start: 20030801

REACTIONS (2)
  - EYE PRURITUS [None]
  - EYE REDNESS [None]
